FAERS Safety Report 9104711 (Version 1)
Quarter: 2013Q1

REPORT INFORMATION
  Report Type: Report from Study
  Country: TR (occurrence: TR)
  Receive Date: 20130219
  Receipt Date: 20130219
  Transmission Date: 20140127
  Serious: Yes (Other)
  Sender: FDA-Public Use
  Company Number: TR-ROCHE-1186724

PATIENT
  Age: 70 Year
  Sex: Female
  Weight: 79 kg

DRUGS (5)
  1. VEMURAFENIB [Suspect]
     Indication: MALIGNANT MELANOMA
     Dosage: LAST DOSE PRIOR TO SAE: 23/JAN/2013
     Route: 048
     Dates: start: 20121120
  2. VEMURAFENIB [Suspect]
     Route: 048
     Dates: start: 20130123
  3. BELOC-ZOK [Concomitant]
     Route: 065
     Dates: start: 2002
  4. CILAZAPRIL/HYDROCHLOROTHIAZIDE [Concomitant]
     Dosage: 5/12.5 MG
     Route: 065
     Dates: start: 2002
  5. AMLODIPINE BESYLATE [Concomitant]
     Route: 065
     Dates: start: 2002

REACTIONS (3)
  - Hyperkeratosis [Recovered/Resolved]
  - Basal cell carcinoma [Recovered/Resolved]
  - Acanthoma [Recovered/Resolved]
